FAERS Safety Report 4403448-4 (Version None)
Quarter: 2004Q3

REPORT INFORMATION
  Report Type: 
  Country: None (occurrence: None)
  Receive Date: 20040719
  Receipt Date: 20040714
  Transmission Date: 20050211
  Serious: Yes (Life-Threatening, Hospitalization, Other)
  Sender: FDA-Public Use
  Company Number: HQWYE406409APR04

PATIENT
  Age: 74 Year
  Sex: Male
  Weight: 61 kg

DRUGS (14)
  1. MYLOTARG [Suspect]
     Indication: ACUTE MYELOID LEUKAEMIA
     Dosage: 15.3 MG 1X PER 1 DAY, INTRAVENOUS
     Dates: start: 20040320, end: 20040320
  2. ACYCLOVIR [Concomitant]
  3. ATENOLOL [Concomitant]
  4. FUROSEMIDE [Concomitant]
  5. FLUCONAZOLE [Concomitant]
  6. LISINOPRIL [Concomitant]
  7. POTASSIUM CHLORIDE [Concomitant]
  8. FLUCONAZOLE [Concomitant]
  9. NITROGLYCERIN TRANSDERMAL SYSTEM (GLYCERYL TRINITRATE) [Concomitant]
  10. ZOCOR [Concomitant]
  11. NPH INSULIN [Concomitant]
  12. CIPROFLOXACIN [Concomitant]
  13. KYTRIL [Concomitant]
  14. VICODIN [Concomitant]

REACTIONS (7)
  - ACUTE MYELOID LEUKAEMIA [None]
  - ASCITES [None]
  - HEPATIC FAILURE [None]
  - MALIGNANT NEOPLASM PROGRESSION [None]
  - PLEURAL EFFUSION [None]
  - RENAL FAILURE ACUTE [None]
  - SPLENOMEGALY [None]
